FAERS Safety Report 9917816 (Version 1)
Quarter: 2014Q1

REPORT INFORMATION
  Report Type: Report from Study
  Country: US (occurrence: US)
  Receive Date: 20140221
  Receipt Date: 20140221
  Transmission Date: 20141002
  Serious: Yes (Hospitalization, Other)
  Sender: FDA-Public Use
  Company Number: US-ABBVIE-14P-163-1202401-00

PATIENT
  Age: 49 Year
  Sex: Male
  Weight: 104.42 kg

DRUGS (4)
  1. HUMIRA [Suspect]
     Indication: CROHN^S DISEASE
     Route: 058
     Dates: start: 2010, end: 2013
  2. HUMIRA [Suspect]
     Route: 058
     Dates: start: 2013, end: 201402
  3. PREDNISONE [Concomitant]
     Indication: PRODUCT USED FOR UNKNOWN INDICATION
  4. 6MP [Concomitant]
     Indication: CROHN^S DISEASE

REACTIONS (12)
  - Proctalgia [Recovered/Resolved]
  - Rectal abscess [Recovered/Resolved]
  - Crohn^s disease [Recovered/Resolved]
  - Rectal discharge [Recovered/Resolved]
  - Rectal haemorrhage [Recovered/Resolved]
  - Rectal abscess [Recovered/Resolved]
  - Rectal abscess [Recovered/Resolved]
  - Cough [Recovered/Resolved]
  - Vomiting [Recovered/Resolved]
  - Pneumonia aspiration [Recovered/Resolved]
  - Bacterial infection [Recovered/Resolved]
  - Pyrexia [Recovered/Resolved]
